FAERS Safety Report 14559197 (Version 2)
Quarter: 2018Q2

REPORT INFORMATION
  Report Type: Spontaneous
  Country: NL (occurrence: NL)
  Receive Date: 20180221
  Receipt Date: 20180406
  Transmission Date: 20180711
  Serious: Yes (Death, Hospitalization, Other)
  Sender: FDA-Public Use
  Company Number: NL-BAYER-2018-007725

PATIENT
  Age: 69 Year
  Sex: Male

DRUGS (1)
  1. XOFIGO [Suspect]
     Active Substance: RADIUM RA-223 DICHLORIDE
     Indication: PROSTATE CANCER METASTATIC
     Dosage: UNK
     Dates: start: 20170908, end: 20171103

REACTIONS (8)
  - Constipation [None]
  - Hospitalisation [None]
  - Fatigue [None]
  - Feeling abnormal [None]
  - Anaemia [Not Recovered/Not Resolved]
  - Anaemia [Not Recovered/Not Resolved]
  - Prostate cancer metastatic [Fatal]
  - Feeling abnormal [None]

NARRATIVE: CASE EVENT DATE: 201712
